FAERS Safety Report 14318258 (Version 1)
Quarter: 2017Q4

REPORT INFORMATION
  Report Type: Other
  Country: FR (occurrence: FR)
  Receive Date: 20171222
  Receipt Date: 20171222
  Transmission Date: 20180321
  Serious: Yes (Life-Threatening)
  Sender: FDA-Public Use
  Company Number: FR-CELLTRION INC.-2017FR017237

PATIENT

DRUGS (14)
  1. LOXAPAC                            /00401801/ [Concomitant]
     Active Substance: LOXAPINE SUCCINATE
  2. REMSIMA [Suspect]
     Active Substance: INFLIXIMAB
     Indication: CROHN^S DISEASE
     Dosage: 400 G, 6 WEEKS
     Route: 042
     Dates: start: 20170713, end: 20170713
  3. VALIUM [Concomitant]
     Active Substance: DIAZEPAM
  4. INIPOMP [Concomitant]
     Active Substance: PANTOPRAZOLE SODIUM
  5. EFFEXOR [Concomitant]
     Active Substance: VENLAFAXINE HYDROCHLORIDE
  6. MOVICOL [Concomitant]
     Active Substance: POLYETHYLENE GLYCOL 3350\POTASSIUM CHLORIDE\SODIUM BICARBONATE\SODIUM CHLORIDE
  7. XARELTO [Concomitant]
     Active Substance: RIVAROXABAN
  8. OXYCONTIN [Suspect]
     Active Substance: OXYCODONE HYDROCHLORIDE
  9. NORSET [Concomitant]
     Active Substance: MIRTAZAPINE
  10. RISPERDAL [Concomitant]
     Active Substance: RISPERIDONE
  11. TRIMEBUTINE [Concomitant]
     Active Substance: TRIMEBUTINE
  12. THERALENE [Concomitant]
     Active Substance: TRIMEPRAZINE
  13. DEPAKOTE [Concomitant]
     Active Substance: DIVALPROEX SODIUM
  14. OXYNORM [Concomitant]
     Active Substance: OXYCODONE HYDROCHLORIDE

REACTIONS (4)
  - Bronchospasm [Recovered/Resolved]
  - Oxygen saturation decreased [Recovered/Resolved]
  - Inappropriate schedule of drug administration [Unknown]
  - Overdose [Unknown]

NARRATIVE: CASE EVENT DATE: 20170713
